FAERS Safety Report 9082409 (Version 1)
Quarter: 2013Q1

REPORT INFORMATION
  Report Type: Report from Study
  Country: US (occurrence: US)
  Receive Date: 20130131
  Receipt Date: 20130131
  Transmission Date: 20140127
  Serious: No
  Sender: FDA-Public Use
  Company Number: US-ABBOTT-12P-163-0991364-00

PATIENT
  Sex: Male
  Weight: 83.99 kg

DRUGS (2)
  1. HUMIRA [Suspect]
     Indication: PSORIASIS
     Route: 058
     Dates: start: 2011, end: 201111
  2. LISINOPRIL  (NON-ABBOTT) [Concomitant]
     Indication: HYPERTENSION
     Dates: start: 2011

REACTIONS (2)
  - Hepatic enzyme increased [Recovering/Resolving]
  - Hepatic steatosis [Not Recovered/Not Resolved]
